FAERS Safety Report 8400116 (Version 2)
Quarter: 2013Q3

REPORT INFORMATION
  Report Type: Report from Study
  Country: GB (occurrence: GB)
  Receive Date: 20120210
  Receipt Date: 20130808
  Transmission Date: 20140515
  Serious: Yes (Hospitalization, Other)
  Sender: FDA-Public Use
  Company Number: GB-ROCHE-793146

PATIENT
  Age: 56 Year
  Sex: Female
  Weight: 67 kg

DRUGS (10)
  1. TOCILIZUMAB [Suspect]
     Indication: RHEUMATOID ARTHRITIS
     Dosage: 640MGS GIVEN
     Route: 042
     Dates: start: 20110615, end: 20110713
  2. RITUXIMAB [Suspect]
     Indication: PRODUCT USED FOR UNKNOWN INDICATION
     Dosage: LAST DOSE PRIOR TO SAE 28/JAN/2011
     Route: 065
     Dates: start: 20110114
  3. DICLOFENAC [Concomitant]
     Route: 065
  4. TRAMADOL [Concomitant]
     Route: 065
  5. AMITRIPTYLINE [Concomitant]
     Dosage: NOCTE
     Route: 065
  6. FOLIC ACID [Concomitant]
     Indication: RHEUMATOID ARTHRITIS
     Route: 048
  7. OMEPRAZOLE [Concomitant]
     Indication: PROPHYLAXIS AGAINST GASTROINTESTINAL ULCER
     Route: 048
  8. ADCAL-D3 [Concomitant]
     Indication: PROPHYLAXIS
     Route: 048
  9. PREDNISOLONE [Concomitant]
     Route: 065
     Dates: start: 201107
  10. METHOTREXATE [Concomitant]
     Indication: RHEUMATOID ARTHRITIS
     Route: 048
     Dates: start: 2007

REACTIONS (4)
  - Oedema peripheral [Recovering/Resolving]
  - Face oedema [Recovering/Resolving]
  - Oedema peripheral [Recovered/Resolved]
  - Weight increased [Recovering/Resolving]
